FAERS Safety Report 6131251-6 (Version None)
Quarter: 2009Q1

REPORT INFORMATION
  Report Type: 
  Country: None (occurrence: None)
  Receive Date: 20090325
  Receipt Date: 20080206
  Transmission Date: 20090719
  Serious: No
  Sender: FDA-Public Use
  Company Number: US-BRISTOL-MYERS SQUIBB COMPANY-14067342

PATIENT
  Sex: Male

DRUGS (5)
  1. ERBITUX [Suspect]
     Indication: COLORECTAL CANCER
     Dates: start: 20080129, end: 20080101
  2. AMIODARONE HCL [Concomitant]
  3. DECADRON [Concomitant]
     Indication: PREMEDICATION
  4. CIMETIDINE HCL [Concomitant]
     Indication: PREMEDICATION
  5. BENADRYL [Concomitant]
     Indication: PREMEDICATION

REACTIONS (3)
  - BACK PAIN [None]
  - EYE ROLLING [None]
  - HYPERHIDROSIS [None]
